FAERS Safety Report 5446659-1 (Version None)
Quarter: 2007Q3

REPORT INFORMATION
  Report Type: 
  Country: None (occurrence: None)
  Receive Date: 20070907
  Receipt Date: 20070831
  Transmission Date: 20080115
  Serious: Yes (Hospitalization)
  Sender: FDA-Public Use
  Company Number: FR-SHR-FR-2007-000680

PATIENT
  Age: 37 Year
  Sex: Female

DRUGS (2)
  1. PRETREATMENT PHASE [Suspect]
     Dosage: UNK, UNK
  2. MIRENA [Suspect]
     Indication: CONTRACEPTION
     Dosage: 20 A?G/DAY, CONT
     Route: 015
     Dates: start: 20020320, end: 20061226

REACTIONS (1)
  - ADENOMYOSIS [None]
